FAERS Safety Report 8272539-2 (Version None)
Quarter: 2012Q2

REPORT INFORMATION
  Report Type: 
  Country: None (occurrence: None)
  Receive Date: 20120410
  Receipt Date: 20120402
  Transmission Date: 20120825
  Serious: Yes (Other)
  Sender: FDA-Public Use
  Company Number: NZ-ROCHE-1056543

PATIENT
  Age: 84 Year
  Sex: Male

DRUGS (11)
  1. BENDROFLUAZIDE [Concomitant]
  2. AZATHIOPRINE [Concomitant]
  3. VINCRISTINE [Concomitant]
     Dosage: APPROXIMATELY 1 WEEK AFTER THE FIRST DOSE OF RITUXIMAB
  4. RITUXIMAB [Suspect]
     Indication: IDIOPATHIC THROMBOCYTOPENIC PURPURA
  5. LEVOTHYROXINE SODIUM [Concomitant]
  6. PREDNISONE TAB [Concomitant]
     Dosage: FOE 2 DAYS
  7. PREDNISONE TAB [Concomitant]
     Dosage: RESUMED FOR THE NEXT 3 MONTHS
  8. WARFARIN SODIUM [Concomitant]
  9. PREDNISONE TAB [Concomitant]
     Dosage: DOSE WAS TAPERED
  10. PREDNISONE TAB [Concomitant]
     Dosage: ALONG WITH COTRIMOXAZOLE
  11. DILTIAZEM HCL [Concomitant]

REACTIONS (3)
  - PULMONARY FIBROSIS [None]
  - PNEUMOCYSTIS JIROVECI INFECTION [None]
  - INTERSTITIAL LUNG DISEASE [None]
